FAERS Safety Report 12632409 (Version 2)
Quarter: 2016Q3

REPORT INFORMATION
  Report Type: Spontaneous
  Country: US (occurrence: US)
  Receive Date: 20160808
  Receipt Date: 20160808
  Transmission Date: 20161109
  Serious: No
  Sender: FDA-Public Use
  Company Number: US-BEH-2016062744

PATIENT
  Age: 61 Year
  Sex: Female
  Weight: 65 kg

DRUGS (21)
  1. HIZENTRA [Suspect]
     Active Substance: HUMAN IMMUNOGLOBULIN G
     Indication: IMMUNODEFICIENCY COMMON VARIABLE
     Route: 058
  2. EPIPEN [Concomitant]
     Active Substance: EPINEPHRINE
  3. TYLENOL [Concomitant]
     Active Substance: ACETAMINOPHEN
  4. LIDOCAINE. [Concomitant]
     Active Substance: LIDOCAINE
  5. DIPHENHYDRAMINE. [Concomitant]
     Active Substance: DIPHENHYDRAMINE
  6. CALCITONIN-SALMON [Concomitant]
     Active Substance: CALCITONIN SALMON
  7. ALLERGY MEDICATION [Concomitant]
     Active Substance: DIPHENHYDRAMINE HYDROCHLORIDE
  8. METFORMIN [Concomitant]
     Active Substance: METFORMIN HYDROCHLORIDE
  9. FUROSEMIDE. [Concomitant]
     Active Substance: FUROSEMIDE
  10. MUCUS DM [Concomitant]
     Active Substance: DEXTROMETHORPHAN HYDROBROMIDE\GUAIFENESIN
  11. TRAVATAN Z [Concomitant]
     Active Substance: TRAVOPROST
  12. QUINAPRIL. [Concomitant]
     Active Substance: QUINAPRIL
  13. OCUVITE [Concomitant]
     Active Substance: VITAMINS
  14. OSTEO BI-FLEX [Concomitant]
     Active Substance: CHONDROITIN SULFATE A\GLUCOSAMINE
  15. ZQUIL [Concomitant]
  16. FIBER LAXATIVE [Concomitant]
     Active Substance: CALCIUM POLYCARBOPHIL
     Dosage: POWDER
  17. OMEPRAZOLE. [Concomitant]
     Active Substance: OMEPRAZOLE
  18. ALLERGY SHOTS [Concomitant]
     Active Substance: UNSPECIFIED INGREDIENT
  19. REFRESH [Concomitant]
     Active Substance: UNSPECIFIED INGREDIENT
  20. SIMVASTATIN. [Concomitant]
     Active Substance: SIMVASTATIN
  21. CELEXA [Concomitant]
     Active Substance: CITALOPRAM HYDROBROMIDE

REACTIONS (1)
  - Sinusitis [Recovered/Resolved]

NARRATIVE: CASE EVENT DATE: 20160225
